FAERS Safety Report 24952122 (Version 4)
Quarter: 2025Q2

REPORT INFORMATION
  Report Type: Spontaneous
  Country: GR (occurrence: GR)
  Receive Date: 20250210
  Receipt Date: 20250422
  Transmission Date: 20250716
  Serious: No
  Sender: PFIZER
  Company Number: GR-PFIZER INC-PV202500014628

PATIENT
  Age: 8 Year
  Sex: Female

DRUGS (1)
  1. NGENLA [Suspect]
     Active Substance: SOMATROGON-GHLA
     Dosage: UNK UNK, WEEKLY
     Dates: start: 2024

REACTIONS (1)
  - Injection site pain [Unknown]
